FAERS Safety Report 6724840-9 (Version None)
Quarter: 2010Q2

REPORT INFORMATION
  Report Type: 
  Country: None (occurrence: None)
  Receive Date: 20100513
  Receipt Date: 20100513
  Transmission Date: 20101027
  Serious: Yes (Hospitalization, Disabling, Other)
  Sender: FDA-Public Use
  Company Number: None

PATIENT
  Age: 51 Year
  Sex: Male
  Weight: 78 kg

DRUGS (1)
  1. CUBICIN [Suspect]
     Indication: SUBCUTANEOUS ABSCESS
     Dosage: 800MG DAILY IV BOLUS
     Route: 040
     Dates: start: 20100422, end: 20100506

REACTIONS (1)
  - PAIN [None]
